FAERS Safety Report 14755806 (Version 5)
Quarter: 2018Q2

REPORT INFORMATION
  Report Type: Spontaneous
  Country: US (occurrence: US)
  Receive Date: 20180413
  Receipt Date: 20180426
  Transmission Date: 20180711
  Serious: No
  Sender: FDA-Public Use
  Company Number: US-PFIZER INC-2018126472

PATIENT
  Age: 57 Year
  Sex: Male
  Weight: 107 kg

DRUGS (3)
  1. XELJANZ XR [Suspect]
     Active Substance: TOFACITINIB CITRATE
     Indication: RHEUMATOID ARTHRITIS
     Dosage: 11 MG, DAILY
     Route: 048
  2. LEVOTHYROXINE. [Concomitant]
     Active Substance: LEVOTHYROXINE
     Indication: THYROID DISORDER
     Dosage: 25 MG, DAILY (ONE TABLET EVERYDAY)
     Route: 048
  3. AMLODIPINE [Concomitant]
     Active Substance: AMLODIPINE BESYLATE
     Indication: BLOOD PRESSURE ABNORMAL
     Dosage: 5 MG, 1X/DAY
     Route: 048

REACTIONS (8)
  - Joint swelling [Not Recovered/Not Resolved]
  - Peripheral swelling [Unknown]
  - Musculoskeletal pain [Unknown]
  - Drug dose omission [Not Recovered/Not Resolved]
  - Musculoskeletal stiffness [Unknown]
  - Joint injury [Unknown]
  - Gait disturbance [Unknown]
  - Knee deformity [Unknown]

NARRATIVE: CASE EVENT DATE: 2018
